FAERS Safety Report 4943268-5 (Version None)
Quarter: 2006Q1

REPORT INFORMATION
  Report Type: 
  Country: None (occurrence: None)
  Receive Date: 20060314
  Receipt Date: 20060220
  Transmission Date: 20060701
  Serious: Yes (Hospitalization)
  Sender: FDA-Public Use
  Company Number: JP-ROCHE-437712

PATIENT
  Age: 14 Year
  Sex: Male
  Weight: 64 kg

DRUGS (2)
  1. TAMIFLU [Suspect]
     Route: 048
     Dates: start: 20060218, end: 20060218
  2. ACETAMINOPHEN [Concomitant]
     Dosage: FORMULATION REPORTED AS ORAL FORMULATION (NOT OTHERWISE SPECIFIED).
     Route: 048
     Dates: start: 20060218, end: 20060218

REACTIONS (6)
  - ABNORMAL BEHAVIOUR [None]
  - FOOT FRACTURE [None]
  - MEMORY IMPAIRMENT [None]
  - PYREXIA [None]
  - SKIN INJURY [None]
  - TRAUMATIC FRACTURE [None]
